FAERS Safety Report 6227344-5 (Version None)
Quarter: 2009Q2

REPORT INFORMATION
  Report Type: 
  Country: None (occurrence: None)
  Receive Date: 20090612
  Receipt Date: 20090602
  Transmission Date: 20091009
  Serious: Yes (Other)
  Sender: FDA-Public Use
  Company Number: FI-JNJFOC-20090602370

PATIENT
  Sex: Female

DRUGS (1)
  1. REMICADE [Suspect]
     Indication: ARTHRITIS
     Dosage: 3 INFUSIONS
     Route: 042

REACTIONS (1)
  - PULMONARY TUBERCULOSIS [None]
